FAERS Safety Report 22290043 (Version 3)
Quarter: 2023Q2

REPORT INFORMATION
  Report Type: Spontaneous
  Country: CZ (occurrence: CZ)
  Receive Date: 20230505
  Receipt Date: 20230613
  Transmission Date: 20230722
  Serious: No
  Sender: FDA-Public Use
  Company Number: CZ-PFIZER INC-PV202300073317

PATIENT
  Sex: Female

DRUGS (1)
  1. MEDROXYPROGESTERONE [Suspect]
     Active Substance: MEDROXYPROGESTERONE
     Dosage: DOSE 104 MG / 0.65 ML
     Route: 042
     Dates: start: 20230417, end: 20230417

REACTIONS (5)
  - Drug dose omission by device [Unknown]
  - Device occlusion [Unknown]
  - Syringe issue [Unknown]
  - Needle issue [Unknown]
  - Off label use [Unknown]

NARRATIVE: CASE EVENT DATE: 20230417
